FAERS Safety Report 5644081-6 (Version None)
Quarter: 2008Q1

REPORT INFORMATION
  Report Type: 
  Country: None (occurrence: None)
  Receive Date: 20080226
  Receipt Date: 20080213
  Transmission Date: 20080703
  Serious: Yes (Other)
  Sender: FDA-Public Use
  Company Number: B0509134A

PATIENT
  Age: 36 Year
  Sex: Female

DRUGS (13)
  1. CO-TRIMOXAZOLE TABLET (SULFAMETHOXAZOLE/TRIMETHO) [Suspect]
     Dates: start: 20061117, end: 20061206
  2. ZANTAC [Suspect]
     Dosage: FOUR TIMES PER DAY / INTRAV
     Route: 042
     Dates: start: 20061115, end: 20061205
  3. MORPHINE [Suspect]
     Dates: start: 20061129, end: 20061206
  4. HUMAN ALBUMIN (FORMULATION UNKNOWN) (HUMAN ALBUMIN) [Suspect]
     Dosage: THREE TIMES PER DAY
     Dates: start: 20061129, end: 20061206
  5. FLUCONAZOLE [Suspect]
     Dosage: INTRAVENOUS
     Route: 042
     Dates: start: 20061104, end: 20061206
  6. FOLIC ACID [Suspect]
     Dates: start: 20061117, end: 20061206
  7. TEICOPLANIN LYOPHILIZED (TEICOPLANIN) [Suspect]
     Dates: start: 20061125, end: 20061206
  8. GANCICLOVIR [Suspect]
     Dates: start: 20061124, end: 20061204
  9. PROPRANOLOL HYDROCHLORIDE [Suspect]
     Dosage: THREE TIMES PER DAY / ORAL
     Route: 048
     Dates: start: 20061125, end: 20061206
  10. MEROPENEM SOLUTION (MEROPENEM) [Suspect]
     Dosage: THREE TIMES PER DAY / ORAL
     Route: 048
     Dates: start: 20061122, end: 20061206
  11. ALEMTUZUMAB (FORMULATION UNKNOWN) (ALEMTUZUMAB) [Suspect]
     Indication: T-CELL LYMPHOMA
     Dosage: THREE TIMES PER DAY / INTRA
     Route: 042
     Dates: start: 20061110, end: 20061204
  12. LORAZEPAM [Suspect]
     Dosage: ORAL
     Route: 048
     Dates: start: 20061109, end: 20061206
  13. MIDAZOLAM (FORMULATION UNKNOWN) (MIDAZOLAM) [Suspect]
     Dates: start: 20061129, end: 20061206

REACTIONS (1)
  - HEPATIC FAILURE [None]
